FAERS Safety Report 17402772 (Version 2)
Quarter: 2020Q1

REPORT INFORMATION
  Report Type: Spontaneous
  Country: US (occurrence: US)
  Receive Date: 20200211
  Receipt Date: 20200219
  Transmission Date: 20200409
  Serious: No
  Sender: FDA-Public Use
  Company Number: US-PFIZER INC-2020057216

PATIENT
  Age: 73 Year
  Sex: Male

DRUGS (1)
  1. XELJANZ XR [Suspect]
     Active Substance: TOFACITINIB CITRATE
     Dosage: 11 MG, UNK
     Dates: start: 201909

REACTIONS (7)
  - Dyspepsia [Unknown]
  - Pain in extremity [Unknown]
  - Arthralgia [Unknown]
  - Condition aggravated [Unknown]
  - Abdominal pain upper [Unknown]
  - Pain [Unknown]
  - Constipation [Unknown]
